FAERS Safety Report 22129036 (Version 1)
Quarter: 2023Q1

REPORT INFORMATION
  Report Type: Spontaneous
  Country: US (occurrence: US)
  Receive Date: 20230323
  Receipt Date: 20230323
  Transmission Date: 20230417
  Serious: Yes (Hospitalization, Other)
  Sender: FDA-Public Use
  Company Number: US-ALKEM LABORATORIES LIMITED-US-ALKEM-2023-02569

PATIENT
  Age: 8 Year
  Sex: Female
  Weight: 29.9 kg

DRUGS (10)
  1. CEFTRIAXONE [Suspect]
     Active Substance: CEFTRIAXONE
     Indication: Pneumonia
     Dosage: 67 MILLIGRAM/KILOGRAM, QD
     Route: 042
  2. PIPERACILLIN SODIUM\TAZOBACTAM SODIUM [Interacting]
     Active Substance: PIPERACILLIN SODIUM\TAZOBACTAM SODIUM
     Indication: Pneumonia
     Dosage: 84 MILLIGRAM/KILOGRAM (PIP X 1 DOSE)
     Route: 042
  3. PIPERACILLIN SODIUM\TAZOBACTAM SODIUM [Interacting]
     Active Substance: PIPERACILLIN SODIUM\TAZOBACTAM SODIUM
     Dosage: 100 MILLIGRAM/KILOGRAM, TID
     Route: 042
  4. PIPERACILLIN SODIUM\TAZOBACTAM SODIUM [Interacting]
     Active Substance: PIPERACILLIN SODIUM\TAZOBACTAM SODIUM
     Dosage: 100 MILLIGRAM/KILOGRAM, QID
     Route: 042
  5. PIPERACILLIN SODIUM\TAZOBACTAM SODIUM [Interacting]
     Active Substance: PIPERACILLIN SODIUM\TAZOBACTAM SODIUM
     Dosage: 100 MILLIGRAM/KILOGRAM, TID
     Route: 042
  6. VANCOMYCIN [Interacting]
     Active Substance: VANCOMYCIN
     Indication: Pneumonia
     Dosage: 18.5 MILLIGRAM/KILOGRAM
     Route: 042
  7. VANCOMYCIN [Interacting]
     Active Substance: VANCOMYCIN
     Dosage: 18.5 MILLIGRAM/KILOGRAM, TID
     Route: 042
  8. VANCOMYCIN [Interacting]
     Active Substance: VANCOMYCIN
     Dosage: 18.5 MILLIGRAM/KILOGRAM, QID
     Route: 042
  9. AZITHROMYCIN [Concomitant]
     Active Substance: AZITHROMYCIN
     Indication: Product used for unknown indication
     Dosage: UNK
     Route: 042
  10. CLINDAMYCIN [Concomitant]
     Active Substance: CLINDAMYCIN
     Indication: Product used for unknown indication
     Dosage: 13 MILLIGRAM/KILOGRAM (PER DOSE)
     Route: 042

REACTIONS (4)
  - Acute kidney injury [Recovered/Resolved]
  - Drug level increased [Recovered/Resolved]
  - Drug interaction [Unknown]
  - Condition aggravated [Not Recovered/Not Resolved]
